FAERS Safety Report 9647115 (Version 1)
Quarter: 2013Q4

REPORT INFORMATION
  Report Type: Spontaneous
  Country: US (occurrence: US)
  Receive Date: 20131027
  Receipt Date: 20131027
  Transmission Date: 20140711
  Serious: No
  Sender: FDA-Public Use
  Company Number: US-PURDUE-USA-2013-0104765

PATIENT
  Sex: Female

DRUGS (1)
  1. OXYCONTIN (NDA 22-272) [Suspect]
     Indication: PRODUCT USED FOR UNKNOWN INDICATION
     Dosage: 80 MG, UNK
     Route: 048

REACTIONS (7)
  - Neurological symptom [Unknown]
  - Gait disturbance [Unknown]
  - Sensation of heaviness [Unknown]
  - Oropharyngeal pain [Unknown]
  - Pain [Unknown]
  - Swelling [Unknown]
  - Dyspnoea [Unknown]
